FAERS Safety Report 4403907-4 (Version None)
Quarter: 2004Q3

REPORT INFORMATION
  Report Type: 
  Country: None (occurrence: None)
  Receive Date: 20040719
  Receipt Date: 20040705
  Transmission Date: 20050211
  Serious: Yes (Other)
  Sender: FDA-Public Use
  Company Number: HQWYE903407JUL04

PATIENT
  Sex: Female

DRUGS (1)
  1. EFFEXOR XR [Suspect]
     Dosage: SEE IMAGE
     Route: 048
     Dates: start: 20040501

REACTIONS (2)
  - CONDITION AGGRAVATED [None]
  - FACIAL PALSY [None]
